FAERS Safety Report 9236055 (Version 1)
Quarter: 2013Q2

REPORT INFORMATION
  Report Type: Spontaneous
  Country: US (occurrence: None)
  Receive Date: 20130416
  Receipt Date: 20130416
  Transmission Date: 20140414
  Serious: No
  Sender: FDA-Public Use
  Company Number: None

PATIENT
  Sex: Male
  Weight: 99.79 kg

DRUGS (1)
  1. VALSARTAN [Suspect]
     Indication: HYPERLIPIDAEMIA
     Dosage: 160/12.5, 1 TAB QD, ORAL
     Route: 048
     Dates: start: 20120207

REACTIONS (7)
  - Confusional state [None]
  - Myalgia [None]
  - Dizziness [None]
  - Hypertension [None]
  - Headache [None]
  - Arthralgia [None]
  - Pain in extremity [None]
